FAERS Safety Report 25275712 (Version 1)
Quarter: 2025Q2

REPORT INFORMATION
  Report Type: Spontaneous
  Country: IL (occurrence: IL)
  Receive Date: 20250507
  Receipt Date: 20250507
  Transmission Date: 20250716
  Serious: Yes (Other)
  Sender: BAXTER
  Company Number: IL-BAXTER-2025BAX014833

PATIENT
  Sex: Female

DRUGS (5)
  1. SODIUM CHLORIDE [Suspect]
     Active Substance: SODIUM CHLORIDE
     Route: 065
  2. SODIUM CHLORIDE [Suspect]
     Active Substance: SODIUM CHLORIDE
     Route: 065
  3. PACLITAXEL [Suspect]
     Active Substance: PACLITAXEL
     Route: 065
     Dates: start: 20250303, end: 20250406
  4. TAXOL [Suspect]
     Active Substance: PACLITAXEL
     Route: 065
  5. TAXOL [Suspect]
     Active Substance: PACLITAXEL
     Route: 065

REACTIONS (5)
  - Loss of consciousness [Unknown]
  - Chest pain [Unknown]
  - Seizure [Unknown]
  - Blood pressure abnormal [Unknown]
  - Chest discomfort [Unknown]

NARRATIVE: CASE EVENT DATE: 20250406
